FAERS Safety Report 7639527-8 (Version None)
Quarter: 2011Q3

REPORT INFORMATION
  Report Type: 
  Country: None (occurrence: None)
  Receive Date: 20110727
  Receipt Date: 20110720
  Transmission Date: 20111222
  Serious: Yes (Other)
  Sender: FDA-Public Use
  Company Number: JP-GLAXOSMITHKLINE-B0722720A

PATIENT
  Sex: Male

DRUGS (2)
  1. ARASENA-A [Concomitant]
     Indication: HERPES ZOSTER
     Route: 061
  2. VALTREX [Suspect]
     Indication: HERPES ZOSTER
     Dosage: 1000MG PER DAY
     Route: 048
     Dates: start: 20110523, end: 20110523

REACTIONS (1)
  - PYREXIA [None]
